FAERS Safety Report 8193130-2 (Version None)
Quarter: 2012Q1

REPORT INFORMATION
  Report Type: 
  Country: None (occurrence: None)
  Receive Date: 20120221
  Receipt Date: 20111104
  Transmission Date: 20120608
  Serious: No
  Sender: FDA-Public Use
  Company Number: 037734

PATIENT
  Sex: Male
  Weight: 90 kg

DRUGS (5)
  1. DILANTIN [Concomitant]
  2. KLONOPIN [Concomitant]
  3. DEPAKOTE ER [Concomitant]
  4. SABRIL [Concomitant]
  5. LACOSAMIDE [Suspect]
     Indication: COMPLEX PARTIAL SEIZURES
     Dosage: (250 MG, 150 MG: AM AND 100 MG: PM, TOTAL DAILY DOSE IS 250 MG ORAL)
     Route: 048
     Dates: start: 20100615

REACTIONS (2)
  - INCREASED APPETITE [None]
  - WEIGHT INCREASED [None]
